FAERS Safety Report 11093685 (Version 2)
Quarter: 2015Q2

REPORT INFORMATION
  Report Type: Spontaneous
  Country: FR (occurrence: FR)
  Receive Date: 20150506
  Receipt Date: 20150601
  Transmission Date: 20150821
  Serious: Yes (Hospitalization, Other)
  Sender: FDA-Public Use
  Company Number: FR-ACTAVIS-2014-28651

PATIENT
  Age: 58 Year
  Sex: Female
  Weight: 41 kg

DRUGS (2)
  1. MOPRAL                             /00661201/ [Concomitant]
     Active Substance: OMEPRAZOLE SODIUM
     Indication: HELICOBACTER INFECTION
     Dosage: 20 MG, BID
     Route: 048
     Dates: start: 20141024
  2. PYLERA [Suspect]
     Active Substance: BISMUTH SUBCITRATE POTASSIUM\METRONIDAZOLE\TETRACYCLINE HYDROCHLORIDE
     Indication: HELICOBACTER INFECTION
     Dosage: 3 DF, TID
     Route: 048
     Dates: start: 20141023, end: 20141030

REACTIONS (16)
  - Metal poisoning [Recovering/Resolving]
  - Headache [Recovering/Resolving]
  - Vertigo [Recovering/Resolving]
  - Dizziness [Recovering/Resolving]
  - Paraesthesia [Not Recovered/Not Resolved]
  - Facial paresis [Recovering/Resolving]
  - Anxiety [Unknown]
  - Hypoaesthesia [Recovering/Resolving]
  - Burning sensation [Recovering/Resolving]
  - Insomnia [Recovering/Resolving]
  - Dysgraphia [Recovering/Resolving]
  - Pain [Recovering/Resolving]
  - Intentional underdose [Recovered/Resolved]
  - Disturbance in attention [Recovering/Resolving]
  - Dysarthria [Recovering/Resolving]
  - Depressed mood [Unknown]

NARRATIVE: CASE EVENT DATE: 201410
